FAERS Safety Report 4722877-2 (Version None)
Quarter: 2005Q3

REPORT INFORMATION
  Report Type: 
  Country: None (occurrence: None)
  Receive Date: 20050722
  Receipt Date: 20050504
  Transmission Date: 20060218
  Serious: Yes (Other)
  Sender: FDA-Public Use
  Company Number: PHNU2005DE01899

PATIENT
  Sex: Male
  Weight: 80 kg

DRUGS (2)
  1. LHRH FERRING [Concomitant]
     Route: 065
  2. ZOMETA [Suspect]
     Indication: METASTASES TO BONE
     Dosage: 4 MG, QMO
     Dates: start: 20050101

REACTIONS (5)
  - CHEST PAIN [None]
  - GYNAECOMASTIA [None]
  - IMPAIRED HEALING [None]
  - RADIOTHERAPY [None]
  - TOOTH EXTRACTION [None]
